FAERS Safety Report 19432988 (Version 1)
Quarter: 2021Q2

REPORT INFORMATION
  Report Type: Spontaneous
  Country: CA (occurrence: CA)
  Receive Date: 20210617
  Receipt Date: 20210617
  Transmission Date: 20210717
  Serious: Yes (Other)
  Sender: FDA-Public Use
  Company Number: CA-TAKEDA-2021TUS037797

PATIENT
  Sex: Female

DRUGS (1)
  1. VYVANSE [Suspect]
     Active Substance: LISDEXAMFETAMINE DIMESYLATE
     Indication: ATTENTION DEFICIT HYPERACTIVITY DISORDER
     Route: 065

REACTIONS (13)
  - Polyuria [Unknown]
  - Nausea [Unknown]
  - Suspected product quality issue [Unknown]
  - Attention deficit hyperactivity disorder [Unknown]
  - Dry mouth [Unknown]
  - Drug ineffective [Unknown]
  - Condition aggravated [Unknown]
  - Decreased activity [Unknown]
  - Product taste abnormal [Unknown]
  - Headache [Unknown]
  - Withdrawal syndrome [Unknown]
  - Asthenia [Unknown]
  - Hypersomnia [Unknown]
